FAERS Safety Report 7332133-4 (Version None)
Quarter: 2011Q1

REPORT INFORMATION
  Report Type: 
  Country: None (occurrence: None)
  Receive Date: 20110304
  Receipt Date: 20110221
  Transmission Date: 20110831
  Serious: Yes (Other)
  Sender: FDA-Public Use
  Company Number: PHHY2011CH06993

PATIENT
  Sex: Female

DRUGS (1)
  1. ACLASTA [Suspect]
     Indication: OSTEOPOROSIS
     Dosage: 5 MG
     Route: 042
     Dates: start: 20110111

REACTIONS (5)
  - WHITE BLOOD CELL COUNT INCREASED [None]
  - ARTHRALGIA [None]
  - SYNOVITIS [None]
  - INFLUENZA LIKE ILLNESS [None]
  - JOINT SWELLING [None]
